FAERS Safety Report 7053983-8 (Version None)
Quarter: 2010Q4

REPORT INFORMATION
  Report Type: 
  Country: None (occurrence: None)
  Receive Date: 20101020
  Receipt Date: 20101007
  Transmission Date: 20110411
  Serious: Yes (Other)
  Sender: FDA-Public Use
  Company Number: US-TYCO HEALTHCARE/MALLINCKRODT-T201002101

PATIENT
  Sex: Female

DRUGS (3)
  1. OPTIRAY 350 [Suspect]
     Indication: COMPUTERISED TOMOGRAM
     Dosage: 100 ML, SINGLE
     Route: 042
     Dates: start: 20101007, end: 20101007
  2. TOPIMAX                            /01201701/ [Concomitant]
     Indication: MIGRAINE
     Dosage: UNK
  3. CLARITIN                           /00917501/ [Concomitant]
     Dosage: UNK

REACTIONS (5)
  - COUGH [None]
  - DYSPHAGIA [None]
  - HYPOAESTHESIA ORAL [None]
  - LIP SWELLING [None]
  - SWOLLEN TONGUE [None]
